FAERS Safety Report 4493255-9 (Version None)
Quarter: 2004Q4

REPORT INFORMATION
  Report Type: 
  Country: None (occurrence: None)
  Receive Date: 20041028
  Receipt Date: 20041019
  Transmission Date: 20050328
  Serious: Yes (Hospitalization)
  Sender: FDA-Public Use
  Company Number: 2004080746

PATIENT
  Sex: Female
  Weight: 77.1115 kg

DRUGS (9)
  1. BENADRYL [Suspect]
     Indication: PRURITUS
     Dosage: 2 SOFTGELS QD/BID PRN, ORAL
     Route: 048
     Dates: start: 19940101
  2. VENLAFAXINE HCL [Concomitant]
  3. QUETIAPINE FUMARATE (QUETIAPINE FUMARATE) [Concomitant]
  4. WARFARIN SODIUM [Concomitant]
  5. FUROSEMIDE [Concomitant]
  6. POTASSIUM CHLORIDE [Concomitant]
  7. SALBUTAMOL (SALBUTAMOL) [Concomitant]
  8. DOCUSATE SODIUM (DOCUSATE SODIUM) [Concomitant]
  9. ACETAMINOPHEN [Concomitant]

REACTIONS (4)
  - ROAD TRAFFIC ACCIDENT [None]
  - SKIN DISORDER [None]
  - STAPHYLOCOCCAL INFECTION [None]
  - THROMBOSIS [None]
